FAERS Safety Report 8301211-5 (Version None)
Quarter: 2012Q2

REPORT INFORMATION
  Report Type: 
  Country: None (occurrence: None)
  Receive Date: 20120420
  Receipt Date: 20120420
  Transmission Date: 20120825
  Serious: Yes (Other)
  Sender: FDA-Public Use
  Company Number: None

PATIENT
  Age: 13 Year
  Sex: Male
  Weight: 59.874 kg

DRUGS (1)
  1. VYVANSE [Suspect]
     Indication: ATTENTION DEFICIT/HYPERACTIVITY DISORDER
     Dosage: TWO 20 MG CAMPSULES
     Route: 048
     Dates: start: 20120408, end: 20120419

REACTIONS (5)
  - RESPIRATORY RATE INCREASED [None]
  - CRYING [None]
  - GAIT DISTURBANCE [None]
  - HYPERHIDROSIS [None]
  - TREMOR [None]
